FAERS Safety Report 5140124-7 (Version None)
Quarter: 2006Q4

REPORT INFORMATION
  Report Type: 
  Country: None (occurrence: None)
  Receive Date: 20061024
  Receipt Date: 20061005
  Transmission Date: 20070319
  Serious: Yes (Hospitalization)
  Sender: FDA-Public Use
  Company Number: US200609006066

PATIENT
  Sex: Female
  Weight: 65.8 kg

DRUGS (1)
  1. ZYPREXA [Suspect]
     Dosage: 5 MG,

REACTIONS (2)
  - DIABETES MELLITUS [None]
  - NEPHRECTOMY [None]
